FAERS Safety Report 15402867 (Version 1)
Quarter: 2018Q3

REPORT INFORMATION
  Report Type: Spontaneous
  Country: US (occurrence: US)
  Receive Date: 20180917
  Receipt Date: 20180917
  Transmission Date: 20181010
  Serious: No
  Sender: FDA-Public Use
  Company Number: None

PATIENT
  Age: 44 Year
  Sex: Male
  Weight: 99 kg

DRUGS (1)
  1. CIPROFLOXACIN. [Suspect]
     Active Substance: CIPROFLOXACIN
     Indication: BACTERIAL PROSTATITIS
     Dosage: ?          QUANTITY:1 TABLET(S);?
     Route: 048
     Dates: start: 20180816, end: 20180817

REACTIONS (16)
  - Myalgia [None]
  - Pain in extremity [None]
  - Pain [None]
  - Burning sensation [None]
  - Asthenia [None]
  - Joint noise [None]
  - Tendonitis [None]
  - Arthralgia [None]
  - Musculoskeletal disorder [None]
  - Neuropathy peripheral [None]
  - Back pain [None]
  - Tremor [None]
  - Walking aid user [None]
  - Musculoskeletal pain [None]
  - Muscular weakness [None]
  - Gait inability [None]

NARRATIVE: CASE EVENT DATE: 20180817
